FAERS Safety Report 7075413-2 (Version None)
Quarter: 2010Q4

REPORT INFORMATION
  Report Type: 
  Country: None (occurrence: None)
  Receive Date: 20101030
  Receipt Date: 20100812
  Transmission Date: 20110411
  Serious: Yes (Hospitalization)
  Sender: FDA-Public Use
  Company Number: US-WYE-H16921310

PATIENT
  Sex: Female
  Weight: 59 kg

DRUGS (26)
  1. TYGACIL [Suspect]
     Indication: PNEUMONIA
     Dates: start: 20100811
  2. PREDNISONE [Concomitant]
     Dosage: UNKNOWN
  3. LANTUS [Concomitant]
     Indication: DIABETES MELLITUS
     Dosage: UNKNOWN/MORNING AND EVENING
  4. NOVOLOG [Concomitant]
     Indication: DIABETES MELLITUS
     Dosage: SLIDING WITH MEALS
  5. ACETAMINOPHEN AND HYDROCODONE BITARTRATE [Concomitant]
     Dosage: UNKNOWN
  6. MAGNESIUM [Concomitant]
     Dosage: UNKNOWN
  7. MAGNESIUM [Concomitant]
     Dosage: UNKNOWN
  8. CALCITRIOL [Concomitant]
     Dosage: UNKNOWN
  9. CABERGOLINE [Concomitant]
     Dosage: UNKNOWN
  10. PLAVIX [Concomitant]
     Dosage: UNKNOWN
  11. RESTASIS [Concomitant]
     Dosage: UNKNOWN
  12. DESMOPRESSIN ACETATE [Concomitant]
     Dosage: UNKNOWN
  13. DOCUSATE SODIUM [Concomitant]
     Dosage: UNKNOWN
  14. DOXYCYCLINE [Concomitant]
     Dosage: UNKNOWN
  15. ESCITALOPRAM [Concomitant]
     Dosage: UNKNOWN
  16. LORAZEPAM [Concomitant]
     Dosage: UNKNOWN
  17. MIDODRINE HYDROCHLORIDE [Concomitant]
     Dosage: UNKNOWN
  18. ZOFRAN [Concomitant]
     Dosage: UNKNOWN
  19. PROTONIX [Concomitant]
     Dosage: UNKNOWN
  20. REGLAN [Concomitant]
     Dosage: UNKNOWN
  21. VIVACTIL [Concomitant]
     Dosage: UNKNOWN
  22. VITAMIN E [Concomitant]
     Dosage: UNKNOWN
  23. METAMUCIL-2 [Concomitant]
     Dosage: UNKNOWN
  24. PENTAMIDINE ISETHIONATE [Concomitant]
     Dosage: UNKNOWN
  25. ACTONEL [Concomitant]
     Dosage: UNKNOWN
  26. PROGRAF [Concomitant]
     Dosage: UNKNOWN

REACTIONS (1)
  - HYPOGLYCAEMIA [None]
